FAERS Safety Report 5283420-5 (Version None)
Quarter: 2007Q2

REPORT INFORMATION
  Report Type: 
  Country: None (occurrence: None)
  Receive Date: 20070402
  Receipt Date: 20070322
  Transmission Date: 20071010
  Serious: Yes (Hospitalization)
  Sender: FDA-Public Use
  Company Number: JP-JNJFOC-20070305966

PATIENT
  Sex: Female
  Weight: 36.2 kg

DRUGS (9)
  1. MICONAZOLE [Suspect]
     Route: 048
     Dates: start: 20070219, end: 20070226
  2. MICONAZOLE [Suspect]
     Indication: ORAL CANDIDIASIS
     Route: 048
     Dates: start: 20070219, end: 20070226
  3. ROSUVASTATIN CALCIUM [Suspect]
     Indication: HYPERLIPIDAEMIA
     Route: 048
     Dates: start: 20060116, end: 20070306
  4. WARFARIN POTASSIUM [Suspect]
     Indication: PULMONARY HYPERTENSION
     Route: 048
     Dates: start: 20061001, end: 20070306
  5. PREDNISOLONE [Concomitant]
     Route: 048
  6. RABEPRAZOLE SODIUM [Concomitant]
     Indication: REFLUX OESOPHAGITIS
     Route: 048
  7. BERAPROST SODIUM [Concomitant]
     Indication: PULMONARY HYPERTENSION
     Route: 048
  8. ACARBOSE [Concomitant]
     Indication: DIABETES MELLITUS
     Route: 048
  9. MAGNESIUM OXIDE [Concomitant]
     Route: 048

REACTIONS (4)
  - DRUG INTERACTION [None]
  - GINGIVAL BLEEDING [None]
  - HAEMORRHAGE SUBCUTANEOUS [None]
  - LIP HAEMORRHAGE [None]
